FAERS Safety Report 4421795-7 (Version None)
Quarter: 2004Q3

REPORT INFORMATION
  Report Type: 
  Country: None (occurrence: None)
  Receive Date: 20040806
  Receipt Date: 20040715
  Transmission Date: 20050211
  Serious: Yes (Other)
  Sender: FDA-Public Use
  Company Number: USA040772817

PATIENT
  Age: 63 Year
  Sex: Female

DRUGS (2)
  1. PROZAC [Suspect]
     Dosage: 60 MG
     Dates: start: 19940101
  2. DIGOXIN [Concomitant]

REACTIONS (1)
  - HEADACHE [None]
